FAERS Safety Report 14755426 (Version 1)
Quarter: 2018Q2

REPORT INFORMATION
  Report Type: Spontaneous
  Country: US (occurrence: US)
  Receive Date: 20180413
  Receipt Date: 20180413
  Transmission Date: 20180711
  Serious: No
  Sender: FDA-Public Use
  Company Number: US-JNJFOC-20180322337

PATIENT
  Age: 13 Year
  Sex: Male
  Weight: 37.65 kg

DRUGS (1)
  1. CHILDRENS TYLENOL [Suspect]
     Active Substance: ACETAMINOPHEN
     Indication: OROPHARYNGEAL PAIN
     Dosage: ONCE
     Route: 065
     Dates: start: 20180315, end: 20180315

REACTIONS (2)
  - Drug administered to patient of inappropriate age [Unknown]
  - Product physical issue [Unknown]

NARRATIVE: CASE EVENT DATE: 20180315
